FAERS Safety Report 20841114 (Version 1)
Quarter: 2022Q2

REPORT INFORMATION
  Report Type: Spontaneous
  Country: US (occurrence: US)
  Receive Date: 20220517
  Receipt Date: 20220517
  Transmission Date: 20220721
  Serious: No
  Sender: FDA-Public Use
  Company Number: US-PFIZER INC-202200205787

PATIENT
  Age: 63 Year
  Sex: Female
  Weight: 90.72 kg

DRUGS (3)
  1. LEVOTHYROXINE SODIUM [Suspect]
     Active Substance: LEVOTHYROXINE SODIUM
     Dosage: UNK
  2. TIROSINT-SOL [Concomitant]
     Active Substance: LEVOTHYROXINE SODIUM
     Indication: Thyroxine abnormal
     Dosage: 100 UG, DAILY
  3. VITAMIN D3 [Concomitant]
     Active Substance: CHOLECALCIFEROL
     Indication: Vitamin D deficiency
     Dosage: 50000 IU (THREE TIMES A WEEK )

REACTIONS (1)
  - Drug ineffective [Unknown]
